FAERS Safety Report 10562005 (Version 1)
Quarter: 2014Q4

REPORT INFORMATION
  Report Type: Spontaneous
  Country: JP (occurrence: JP)
  Receive Date: 20141104
  Receipt Date: 20141104
  Transmission Date: 20150529
  Serious: Yes (Disabling, Other)
  Sender: FDA-Public Use
  Company Number: JP-ROCHE-1480974

PATIENT
  Age: 45 Year
  Sex: Male

DRUGS (2)
  1. ROCEPHIN [Suspect]
     Active Substance: CEFTRIAXONE SODIUM
     Indication: PRODUCT USED FOR UNKNOWN INDICATION
     Dosage: DOSAGE IS UNCERTAIN.
     Route: 041
  2. ADRENALINE [Suspect]
     Active Substance: EPINEPHRINE
     Indication: PRODUCT USED FOR UNKNOWN INDICATION
     Route: 042

REACTIONS (4)
  - Anaphylactic shock [Recovered/Resolved with Sequelae]
  - Hypoxic-ischaemic encephalopathy [Recovered/Resolved with Sequelae]
  - Myocardial ischaemia [Recovered/Resolved]
  - Intestinal ischaemia [Recovered/Resolved]
